FAERS Safety Report 15796989 (Version 1)
Quarter: 2019Q1

REPORT INFORMATION
  Report Type: Spontaneous
  Country: US (occurrence: US)
  Receive Date: 20190108
  Receipt Date: 20190108
  Transmission Date: 20190417
  Serious: No
  Sender: FDA-Public Use
  Company Number: US-BAUSCH-BL-2017-031560

PATIENT
  Sex: Male

DRUGS (2)
  1. XENAZINE [Suspect]
     Active Substance: TETRABENAZINE
     Indication: HUNTINGTON^S DISEASE
     Route: 048
     Dates: start: 20151111
  2. XENAZINE [Suspect]
     Active Substance: TETRABENAZINE
     Indication: CHOREA

REACTIONS (2)
  - Dizziness [Unknown]
  - Chorea [Unknown]

NARRATIVE: CASE EVENT DATE: 2017
